FAERS Safety Report 5743715-5 (Version None)
Quarter: 2008Q2

REPORT INFORMATION
  Report Type: 
  Country: None (occurrence: None)
  Receive Date: 20080520
  Receipt Date: 20080508
  Transmission Date: 20081010
  Serious: Yes (Hospitalization, Other)
  Sender: FDA-Public Use
  Company Number: US-ROCHE-563148

PATIENT
  Age: 59 Year
  Sex: Male

DRUGS (6)
  1. XELODA [Suspect]
     Route: 065
     Dates: end: 20080428
  2. GEMCITABINE [Suspect]
     Route: 065
  3. FLOMAX [Concomitant]
  4. FLOMAX [Concomitant]
  5. PROTONIX [Concomitant]
  6. ALDACTONE [Concomitant]

REACTIONS (3)
  - GASTROINTESTINAL HAEMORRHAGE [None]
  - PORTAL HYPERTENSION [None]
  - VENOUS THROMBOSIS [None]
